FAERS Safety Report 16710761 (Version 2)
Quarter: 2019Q3

REPORT INFORMATION
  Report Type: Spontaneous
  Country: FR (occurrence: FR)
  Receive Date: 20190816
  Receipt Date: 20190903
  Transmission Date: 20191004
  Serious: Yes (Hospitalization)
  Sender: FDA-Public Use
  Company Number: FR-MYLANLABS-2019M1075568

PATIENT
  Age: 45 Year
  Sex: Male

DRUGS (7)
  1. CABOMETYX [Suspect]
     Active Substance: CABOZANTINIB S-MALATE
     Indication: GASTROINTESTINAL CARCINOMA
     Dosage: 1 UNK, QD
     Route: 048
     Dates: start: 201711, end: 20180820
  2. IMATINIB. [Suspect]
     Active Substance: IMATINIB MESYLATE
     Indication: GASTROINTESTINAL CARCINOMA
     Dosage: UNK
     Route: 048
     Dates: start: 201711, end: 20180820
  3. TASIGNA [Concomitant]
     Active Substance: NILOTINIB
     Indication: GASTROINTESTINAL CARCINOMA
     Dosage: UNK
     Route: 048
     Dates: start: 20180925, end: 20181028
  4. SUTENT [Suspect]
     Active Substance: SUNITINIB MALATE
     Indication: GASTROINTESTINAL CARCINOMA
     Dosage: UNK
     Route: 048
     Dates: start: 201711, end: 20180820
  5. SUTENT [Suspect]
     Active Substance: SUNITINIB MALATE
     Dosage: UNK
     Route: 048
  6. STIVARGA [Concomitant]
     Active Substance: REGORAFENIB
     Indication: GASTROINTESTINAL CARCINOMA
     Dosage: 160 MILLIGRAM, QD
     Route: 048
     Dates: start: 20180905, end: 20181104
  7. IMATINIB. [Suspect]
     Active Substance: IMATINIB MESYLATE
     Dosage: UNK
     Route: 048

REACTIONS (2)
  - Behaviour disorder [Not Recovered/Not Resolved]
  - Altered state of consciousness [Not Recovered/Not Resolved]

NARRATIVE: CASE EVENT DATE: 20180818
